FAERS Safety Report 4621903-9 (Version None)
Quarter: 2005Q1

REPORT INFORMATION
  Report Type: 
  Country: None (occurrence: None)
  Receive Date: 20050329
  Receipt Date: 20050328
  Transmission Date: 20050727
  Serious: Yes (Other)
  Sender: FDA-Public Use
  Company Number: US-GLAXOSMITHKLINE-A0551503A

PATIENT
  Age: 68 Year
  Sex: Male

DRUGS (8)
  1. COREG [Suspect]
     Indication: HYPERTENSION
     Route: 048
     Dates: start: 20030101
  2. BETA BLOCKER [Concomitant]
  3. INDOMETHACIN [Concomitant]
  4. AMARYL [Concomitant]
  5. FOLIC ACID [Concomitant]
  6. VITAMINS [Concomitant]
  7. IBUPROFEN [Concomitant]
  8. ASPIRIN [Concomitant]

REACTIONS (10)
  - ABDOMINAL PAIN UPPER [None]
  - ACCIDENT [None]
  - BLOOD GLUCOSE DECREASED [None]
  - DIZZINESS [None]
  - DYSPEPSIA [None]
  - FATIGUE [None]
  - HEAD INJURY [None]
  - INTESTINAL OBSTRUCTION [None]
  - LOSS OF CONSCIOUSNESS [None]
  - SKIN LACERATION [None]
